FAERS Safety Report 6061045-1 (Version None)
Quarter: 2009Q1

REPORT INFORMATION
  Report Type: 
  Country: None (occurrence: None)
  Receive Date: 20090202
  Receipt Date: 20090128
  Transmission Date: 20090719
  Serious: Yes (Death)
  Sender: FDA-Public Use
  Company Number: US-JNJFOC-20081200020

PATIENT
  Sex: Male
  Weight: 92.53 kg

DRUGS (3)
  1. FENTANYL-75 [Suspect]
     Indication: DRUG USE FOR UNKNOWN INDICATION
  2. ULTRAM [Suspect]
     Indication: PAIN
  3. FLEXERIL [Suspect]
     Indication: BACK PAIN

REACTIONS (1)
  - OVERDOSE [None]
